FAERS Safety Report 8980828 (Version 1)
Quarter: 2012Q4

REPORT INFORMATION
  Report Type: 
  Country: US (occurrence: US)
  Receive Date: 20121221
  Receipt Date: 20121221
  Transmission Date: 20130627
  Serious: No
  Sender: FDA-Public Use
  Company Number: US-PFIZER INC-2012321753

PATIENT
  Age: 72 Year
  Sex: Female
  Weight: 65.8 kg

DRUGS (4)
  1. PREMARIN [Suspect]
     Indication: HRT
     Dosage: 1.25 mg, UNK
     Route: 048
     Dates: start: 1973, end: 2012
  2. PREMARIN VAGINAL CREAM [Suspect]
     Dosage: UNK
     Route: 067
  3. ACETYLSALICYLIC ACID [Concomitant]
     Indication: ANTICOAGULANT THERAPY
     Dosage: 81 mg, UNK
  4. FISH OIL [Concomitant]
     Dosage: UNK

REACTIONS (2)
  - Drug ineffective [Unknown]
  - Hot flush [Not Recovered/Not Resolved]
